FAERS Safety Report 9565574 (Version 1)
Quarter: 2013Q3

REPORT INFORMATION
  Report Type: Spontaneous
  Country: US (occurrence: US)
  Receive Date: 20130930
  Receipt Date: 20130930
  Transmission Date: 20140515
  Serious: No
  Sender: FDA-Public Use
  Company Number: US-COVIDIEN/TYCO HEALTHCARE/MALLINCKRODT-T201303795

PATIENT
  Sex: Male

DRUGS (2)
  1. METHYLPHENIDATE HYDROCHLORIDE EXTENDED RELEASE TABLETS [Suspect]
     Indication: PRODUCT USED FOR UNKNOWN INDICATION
     Dosage: 54 MG, UNK
     Dates: start: 20130717
  2. CONCERTA [Concomitant]
     Dosage: UNK

REACTIONS (6)
  - Disturbance in attention [Unknown]
  - Dysphoria [Unknown]
  - Palpitations [Unknown]
  - Nausea [Unknown]
  - Drug effect increased [Unknown]
  - Drug ineffective [Unknown]
